FAERS Safety Report 4382624-3 (Version None)
Quarter: 2004Q2

REPORT INFORMATION
  Report Type: 
  Country: None (occurrence: None)
  Receive Date: 20040616
  Receipt Date: 20040608
  Transmission Date: 20050107
  Serious: Yes (Hospitalization)
  Sender: FDA-Public Use
  Company Number: TAP2004Q00720

PATIENT
  Age: 2 Year
  Sex: Male
  Weight: 9.9791 kg

DRUGS (1)
  1. PREVACID [Suspect]
     Indication: GASTROOESOPHAGEAL REFLUX DISEASE
     Dosage: PER ORAL
     Route: 048
     Dates: start: 20040503

REACTIONS (5)
  - FALL [None]
  - HEAD INJURY [None]
  - PHARMACEUTICAL PRODUCT COMPLAINT [None]
  - SKULL FRACTURE [None]
  - VOMITING [None]
